FAERS Safety Report 4718128-5 (Version None)
Quarter: 2005Q3

REPORT INFORMATION
  Report Type: 
  Country: None (occurrence: None)
  Receive Date: 20050718
  Receipt Date: 20050210
  Transmission Date: 20060218
  Serious: Yes (Other)
  Sender: FDA-Public Use
  Company Number: 2005000384

PATIENT
  Age: 81 Year
  Sex: Female

DRUGS (1)
  1. TRACEVA (TABLET) (ERLOTINIB) [Suspect]
     Indication: NON-SMALL CELL LUNG CANCER
     Dosage: 150 MG (QD), ORAL
     Route: 048
     Dates: start: 20050209, end: 20050210

REACTIONS (1)
  - DYSPNOEA [None]
